FAERS Safety Report 10041418 (Version 1)
Quarter: 2014Q1

REPORT INFORMATION
  Report Type: Spontaneous
  Country: US (occurrence: US)
  Receive Date: 20140327
  Receipt Date: 20140327
  Transmission Date: 20141002
  Serious: Yes (Other)
  Sender: FDA-Public Use
  Company Number: US-GE HEALTHCARE MEDICAL DIAGNOSTICS-VISP-PR-1403S-0132

PATIENT
  Age: 35 Year
  Sex: Female

DRUGS (4)
  1. VISIPAQUE [Suspect]
     Indication: CHEST PAIN
     Route: 042
     Dates: start: 20140314, end: 20140314
  2. VISIPAQUE [Suspect]
     Indication: DIAGNOSTIC PROCEDURE
  3. ELAVIL [Concomitant]
  4. FLEXERIL [Concomitant]

REACTIONS (2)
  - Urticaria [Recovered/Resolved]
  - Dyspnoea [Recovered/Resolved]
